FAERS Safety Report 7503642-X (Version None)
Quarter: 2011Q2

REPORT INFORMATION
  Report Type: 
  Country: None (occurrence: None)
  Receive Date: 20110525
  Receipt Date: 20110517
  Transmission Date: 20111010
  Serious: Yes (Life-Threatening, Hospitalization)
  Sender: FDA-Public Use
  Company Number: MX-SANOFI-AVENTIS-2011SA029977

PATIENT
  Age: 69 Year
  Sex: Male
  Weight: 75 kg

DRUGS (8)
  1. ENALAPRIL MALEATE [Concomitant]
     Route: 065
     Dates: start: 20110425
  2. BLINDED THERAPY [Suspect]
     Indication: PULMONARY TUBERCULOSIS
     Dates: start: 20110418
  3. BLINDED THERAPY [Suspect]
     Dates: start: 20110418
  4. AMOXICILLIN AND CLAVULANATE POTASSIUM [Suspect]
     Indication: URINARY TRACT INFECTION
     Dosage: 1.5 G/450 MG
     Route: 048
     Dates: start: 20110502, end: 20110512
  5. LORATADINE [Suspect]
     Route: 048
     Dates: start: 20110502, end: 20110502
  6. BLINDED THERAPY [Suspect]
     Dates: start: 20110418
  7. RIFAMPICIN [Suspect]
     Indication: PULMONARY TUBERCULOSIS
     Route: 065
     Dates: start: 20110418
  8. PYRAZINAMIDE [Suspect]
     Indication: PULMONARY TUBERCULOSIS
     Route: 065
     Dates: start: 20110418

REACTIONS (6)
  - RENAL FAILURE ACUTE [None]
  - DYSPNOEA [None]
  - VOMITING [None]
  - OEDEMA PERIPHERAL [None]
  - NAUSEA [None]
  - CARDIAC FAILURE CONGESTIVE [None]
